FAERS Safety Report 16012579 (Version 3)
Quarter: 2019Q1

REPORT INFORMATION
  Report Type: Spontaneous
  Country: GB (occurrence: GB)
  Receive Date: 20190227
  Receipt Date: 20190319
  Transmission Date: 20190418
  Serious: Yes (Life-Threatening, Hospitalization)
  Sender: FDA-Public Use
  Company Number: GB-GUERBET-GB-20190035

PATIENT
  Age: 25 Year
  Sex: Male
  Weight: 60 kg

DRUGS (1)
  1. DOTAREM [Suspect]
     Active Substance: GADOTERATE MEGLUMINE
     Indication: NUCLEAR MAGNETIC RESONANCE IMAGING HEART
     Route: 042
     Dates: start: 20190129, end: 20190129

REACTIONS (5)
  - Swelling face [Recovered/Resolved]
  - Wheezing [Recovered/Resolved]
  - Tachycardia [Recovered/Resolved]
  - Rash [Recovered/Resolved]
  - Feeling hot [Unknown]

NARRATIVE: CASE EVENT DATE: 20190129
